FAERS Safety Report 23308517 (Version 1)
Quarter: 2023Q4

REPORT INFORMATION
  Report Type: Spontaneous
  Country: CZ (occurrence: CZ)
  Receive Date: 20231218
  Receipt Date: 20231218
  Transmission Date: 20240109
  Serious: Yes (Hospitalization, Other)
  Sender: FDA-Public Use
  Company Number: CZ-NOVPHSZ-PHHY2019CZ124815

PATIENT
  Age: 4 Year
  Sex: Male
  Weight: 29 kg

DRUGS (7)
  1. HUMIRA [Suspect]
     Active Substance: ADALIMUMAB
     Dosage: 20 MG, QW
     Route: 058
     Dates: start: 20190324, end: 20190421
  2. HUMIRA [Suspect]
     Active Substance: ADALIMUMAB
     Dosage: 20 MG, Q2W
     Route: 058
     Dates: start: 20180201
  3. HUMIRA [Suspect]
     Active Substance: ADALIMUMAB
     Indication: Juvenile idiopathic arthritis
     Dosage: 24 MG/M2, Q2W
     Route: 058
     Dates: start: 201611
  4. HUMIRA [Suspect]
     Active Substance: ADALIMUMAB
     Indication: Iridocyclitis
     Dosage: 20 MG, QW
     Route: 065
     Dates: start: 201611
  5. METHOTREXATE [Suspect]
     Active Substance: METHOTREXATE
     Dosage: 10 MG, QW
     Route: 058
     Dates: start: 201808, end: 20190419
  6. METHOTREXATE [Suspect]
     Active Substance: METHOTREXATE
     Indication: Iridocyclitis
     Dosage: 7.5 MG, QW
     Route: 058
     Dates: start: 20160801
  7. FOLIC ACID [Concomitant]
     Active Substance: FOLIC ACID
     Indication: Drug therapy
     Dosage: 10 MG, QW
     Route: 048
     Dates: start: 201608

REACTIONS (27)
  - Immunosuppression [Recovering/Resolving]
  - Central nervous system lesion [Recovering/Resolving]
  - Demyelination [Recovering/Resolving]
  - Facial paresis [Recovered/Resolved]
  - Monoparesis [Recovered/Resolved]
  - Motor dysfunction [Recovered/Resolved]
  - Altered state of consciousness [Recovered/Resolved]
  - Inflammation [Not Recovered/Not Resolved]
  - Epstein-Barr virus infection [Recovering/Resolving]
  - Somnolence [Recovered/Resolved]
  - Agitation [Recovered/Resolved]
  - Uveitis [Unknown]
  - Dysarthria [Recovered/Resolved]
  - Arthralgia [Unknown]
  - Sarcoidosis [Unknown]
  - Hemiplegia [Recovered/Resolved]
  - Blood uric acid increased [Recovered/Resolved]
  - Blood creatinine increased [Recovered/Resolved]
  - Leukocyturia [Recovered/Resolved]
  - Joint swelling [Unknown]
  - Blood urea increased [Recovered/Resolved]
  - Hypercalcaemia [Recovered/Resolved]
  - Granuloma [Unknown]
  - Blood parathyroid hormone decreased [Recovered/Resolved]
  - Nephropathy [Recovered/Resolved]
  - Mobility decreased [Unknown]
  - Arthropathy [Unknown]

NARRATIVE: CASE EVENT DATE: 20190402
